FAERS Safety Report 7301777-8 (Version None)
Quarter: 2011Q1

REPORT INFORMATION
  Report Type: 
  Country: None (occurrence: None)
  Receive Date: 20110218
  Receipt Date: 20110215
  Transmission Date: 20110831
  Serious: Yes (Other)
  Sender: FDA-Public Use
  Company Number: A0913774A

PATIENT
  Age: 70 Year
  Sex: Male

DRUGS (2)
  1. VERAMYST [Suspect]
     Dosage: 1SPR TWICE PER DAY
     Route: 045
     Dates: start: 20100101, end: 20100101
  2. EXCEDRIN (MIGRAINE) [Concomitant]

REACTIONS (1)
  - ANOSMIA [None]
